FAERS Safety Report 7073742-X (Version None)
Quarter: 2010Q4

REPORT INFORMATION
  Report Type: 
  Country: None (occurrence: None)
  Receive Date: 20101029
  Receipt Date: 20100812
  Transmission Date: 20110411
  Serious: No
  Sender: FDA-Public Use
  Company Number: A0874626A

PATIENT
  Age: 84 Year
  Sex: Male

DRUGS (5)
  1. ADVAIR DISKUS 100/50 [Suspect]
     Dosage: 1PUFF TWICE PER DAY
     Route: 055
     Dates: start: 20100805, end: 20100809
  2. COMBIVENT [Concomitant]
  3. AUGMENTIN '125' [Concomitant]
  4. FLOMAX [Concomitant]
  5. IBUPROFEN [Concomitant]

REACTIONS (5)
  - BLISTER [None]
  - ERYTHEMA [None]
  - RASH [None]
  - SKIN DISCOLOURATION [None]
  - URTICARIA [None]
